FAERS Safety Report 24150116 (Version 2)
Quarter: 2025Q3

REPORT INFORMATION
  Report Type: Spontaneous
  Country: US (occurrence: US)
  Receive Date: 20240730
  Receipt Date: 20250818
  Transmission Date: 20251020
  Serious: Yes (Disabling, Other)
  Sender: CHATTEM
  Company Number: US-OPELLA-2024OHG025407

PATIENT
  Sex: Female

DRUGS (1)
  1. GOLD BOND ORIGINAL STRENGTH [Suspect]
     Active Substance: MENTHOL
     Indication: Product used for unknown indication

REACTIONS (4)
  - Pleural mesothelioma [Unknown]
  - Epithelioid mesothelioma [Unknown]
  - Lung adenocarcinoma [Unknown]
  - Exposure to chemical pollution [Unknown]

NARRATIVE: CASE EVENT DATE: 20240501
